FAERS Safety Report 4425693-4 (Version None)
Quarter: 2004Q3

REPORT INFORMATION
  Report Type: 
  Country: None (occurrence: None)
  Receive Date: 20040810
  Receipt Date: 20040726
  Transmission Date: 20050211
  Serious: Yes (Hospitalization)
  Sender: FDA-Public Use
  Company Number: 192951

PATIENT
  Age: 36 Year
  Sex: Female
  Weight: 63.5036 kg

DRUGS (3)
  1. AVONEX [Suspect]
     Indication: MULTIPLE SCLEROSIS
     Dosage: 30 MCG QW IM
     Route: 030
     Dates: end: 20031001
  2. AVONEX [Suspect]
     Indication: MULTIPLE SCLEROSIS
     Dosage: 30 MCG QW IM
     Route: 030
     Dates: start: 20031001
  3. INSULIN PUMP [Concomitant]

REACTIONS (10)
  - BACTERAEMIA [None]
  - BLOOD GLUCOSE INCREASED [None]
  - BLOOD SODIUM DECREASED [None]
  - GLUCOSE URINE PRESENT [None]
  - INFLUENZA LIKE ILLNESS [None]
  - OCULAR RETROBULBAR HAEMORRHAGE [None]
  - PYELONEPHRITIS ACUTE [None]
  - URINARY BLADDER ABSCESS [None]
  - URINARY TRACT INFECTION [None]
  - URINE KETONE BODY PRESENT [None]
